FAERS Safety Report 8445685-8 (Version None)
Quarter: 2012Q2

REPORT INFORMATION
  Report Type: 
  Country: None (occurrence: None)
  Receive Date: 20120323
  Receipt Date: 20110622
  Transmission Date: 20120825
  Serious: Yes (Death, Hospitalization)
  Sender: FDA-Public Use
  Company Number: 163-21880-11063104

PATIENT
  Age: 66 Year
  Sex: Male

DRUGS (8)
  1. HYDROCHLOROTHIAZIDE [Concomitant]
  2. ZOLPIDEM [Concomitant]
  3. DECADRON [Concomitant]
  4. ASPIRIN [Concomitant]
  5. VICODIN [Concomitant]
  6. MORPHINE [Concomitant]
  7. PERCOCET [Concomitant]
  8. LENALIDOMIDE [Suspect]
     Indication: MULTIPLE MYELOMA
     Dosage: 10 MG, DAILY FOR 21 DAYS EVERY 28, PO
     Route: 048
     Dates: start: 20091001, end: 20091101

REACTIONS (2)
  - PANCYTOPENIA [None]
  - PNEUMONIA [None]
